FAERS Safety Report 18470241 (Version 4)
Quarter: 2021Q1

REPORT INFORMATION
  Report Type: Report from Study
  Country: CO (occurrence: CO)
  Receive Date: 20201102
  Receipt Date: 20210106
  Transmission Date: 20210419
  Serious: Yes (Other)
  Sender: FDA-Public Use
  Company Number: CO-INCYTE CORPORATION-2020IN010708

PATIENT

DRUGS (2)
  1. JAKAVI [Suspect]
     Active Substance: RUXOLITINIB
     Indication: POLYCYTHAEMIA VERA
     Dosage: 15 MG, Q12H
     Route: 048
     Dates: start: 2017
  2. JAKAVI [Suspect]
     Active Substance: RUXOLITINIB
     Dosage: 30 MG, QD
     Route: 048

REACTIONS (11)
  - Abdominal pain [Unknown]
  - Lactose intolerance [Unknown]
  - Diverticulum intestinal [Unknown]
  - Haemoglobin decreased [Unknown]
  - Second primary malignancy [Unknown]
  - Inappropriate schedule of product administration [Unknown]
  - Synovial cyst [Unknown]
  - Platelet count decreased [Unknown]
  - Abdominal discomfort [Unknown]
  - Hodgkin^s disease [Unknown]
  - Abdominal pain upper [Unknown]
